FAERS Safety Report 8432868 (Version 2)
Quarter: 2012Q4

REPORT INFORMATION
  Report Type: 
  Country: GB (occurrence: GB)
  Receive Date: 20120229
  Receipt Date: 20120919
  Transmission Date: 20130627
  Serious: Yes (Other)
  Sender: FDA-Public Use
  Company Number: GB-ELI_LILLY_AND_COMPANY-GB201202005228

PATIENT
  Age: 66 Year
  Sex: Male
  Weight: 69 kg

DRUGS (7)
  1. DULOXETINE HYDROCHLORIDE [Suspect]
     Indication: DIABETIC NEUROPATHY
     Dosage: 60 mg, qd
     Dates: start: 20110408
  2. DULOXETINE HYDROCHLORIDE [Suspect]
     Dosage: 60 mg, bid
     Dates: start: 20110705
  3. DULOXETINE HYDROCHLORIDE [Suspect]
     Dosage: 30 mg, qd
     Dates: start: 20111202, end: 201202
  4. METFORMIN [Concomitant]
     Dosage: UNK
     Dates: start: 20111012, end: 20111109
  5. NIQUITIN [Concomitant]
     Dosage: UNK
     Dates: start: 20110930
  6. SIMVASTATIN [Concomitant]
     Dosage: UNK
     Dates: start: 20111012, end: 20111207
  7. TRIMETHOPRIM [Concomitant]
     Dosage: UNK
     Dates: start: 20110930

REACTIONS (10)
  - Personality disorder [Recovered/Resolved]
  - Anhedonia [Recovered/Resolved]
  - Decreased appetite [Recovered/Resolved]
  - Vision blurred [Recovered/Resolved]
  - Dizziness [Recovered/Resolved]
  - Muscle twitching [Recovered/Resolved]
  - Personality change [Recovered/Resolved]
  - Weight decreased [Recovered/Resolved]
  - Orthostatic hypertension [Recovered/Resolved]
  - Withdrawal syndrome [Recovered/Resolved]
